FAERS Safety Report 7153248-X (Version None)
Quarter: 2010Q4

REPORT INFORMATION
  Report Type: 
  Country: None (occurrence: None)
  Receive Date: 20101213
  Receipt Date: 20101202
  Transmission Date: 20110411
  Serious: Yes (Hospitalization)
  Sender: FDA-Public Use
  Company Number: PL-ASTRAZENECA-2010SE57196

PATIENT
  Age: 61 Year
  Sex: Female
  Weight: 80 kg

DRUGS (4)
  1. FASLODEX [Suspect]
     Indication: BREAST CANCER
     Route: 030
     Dates: start: 20101021, end: 20101021
  2. SPIRONOL [Concomitant]
     Indication: HYDROTHORAX
     Route: 048
     Dates: end: 20101202
  3. METINDOL [Concomitant]
     Indication: ARTHRALGIA
     Route: 048
     Dates: end: 20101202
  4. ZALDIAR [Concomitant]
     Indication: ARTHRALGIA
     Route: 048
     Dates: end: 20101202

REACTIONS (5)
  - CHILLS [None]
  - DYSPNOEA [None]
  - FLUSHING [None]
  - HYPERSENSITIVITY [None]
  - PALMAR-PLANTAR ERYTHRODYSAESTHESIA SYNDROME [None]
